FAERS Safety Report 4408081-6 (Version None)
Quarter: 2004Q3

REPORT INFORMATION
  Report Type: 
  Country: None (occurrence: None)
  Receive Date: 20040722
  Receipt Date: 20040517
  Transmission Date: 20050211
  Serious: Yes (Death, Other)
  Sender: FDA-Public Use
  Company Number: RB-723-2004

PATIENT
  Sex: Male

DRUGS (1)
  1. BUPRENORPHINE HYDROCHLORIDE, HEROIN [Suspect]
     Indication: DRUG DEPENDENCE
     Dosage: SL
     Route: 060

REACTIONS (2)
  - DEEP VEIN THROMBOSIS [None]
  - OVERDOSE [None]
